FAERS Safety Report 7716556-7 (Version None)
Quarter: 2011Q3

REPORT INFORMATION
  Report Type: 
  Country: None (occurrence: None)
  Receive Date: 20110829
  Receipt Date: 20110824
  Transmission Date: 20111222
  Serious: Yes (Hospitalization, Other)
  Sender: FDA-Public Use
  Company Number: US-TEVA-294181USA

PATIENT
  Sex: Male

DRUGS (7)
  1. LANSOPRAZOLE [Concomitant]
     Dosage: 30 MILLIGRAM;
  2. MULTI-VITAMIN [Concomitant]
  3. CLOZAPINE [Suspect]
     Dosage: 300 MILLIGRAM;
     Route: 048
  4. CLONAZEPAM [Concomitant]
     Dosage: BID
  5. DEFLAZACORT [Concomitant]
     Dosage: TID
  6. ATORVASTATIN CALCIUM [Concomitant]
     Dosage: 10 MILLIGRAM;
  7. ENALAPRIL MALEATE [Concomitant]

REACTIONS (1)
  - ACUTE MYELOID LEUKAEMIA [None]
